FAERS Safety Report 18397519 (Version 1)
Quarter: 2020Q4

REPORT INFORMATION
  Report Type: Spontaneous
  Country: US (occurrence: US)
  Receive Date: 20201018
  Receipt Date: 20201018
  Transmission Date: 20210114
  Serious: No
  Sender: FDA-Public Use
  Company Number: None

PATIENT
  Age: 41 Year
  Sex: Female
  Weight: 61.65 kg

DRUGS (1)
  1. DEXTROAMPHET SACCHARAT, AMPHET ASPARTATE, DEXTROAMPHET SULFATE AND AMPHET SULFAT [Suspect]
     Active Substance: AMPHETAMINE ASPARTATE\AMPHETAMINE SULFATE\DEXTROAMPHETAMINE SACCHARATE\DEXTROAMPHETAMINE SULFATE
     Indication: ATTENTION DEFICIT HYPERACTIVITY DISORDER
     Dosage: ?          QUANTITY:1 TABLET(S);?
     Route: 048
     Dates: start: 20200710, end: 20201016

REACTIONS (9)
  - Product physical consistency issue [None]
  - Product formulation issue [None]
  - Headache [None]
  - Therapeutic response changed [None]
  - Drug ineffective [None]
  - Manufacturing materials issue [None]
  - Product substitution issue [None]
  - Product physical issue [None]
  - Product complaint [None]

NARRATIVE: CASE EVENT DATE: 20200710
